FAERS Safety Report 7992351-9 (Version None)
Quarter: 2011Q4

REPORT INFORMATION
  Report Type: 
  Country: None (occurrence: None)
  Receive Date: 20111219
  Receipt Date: 20110207
  Transmission Date: 20120403
  Serious: No
  Sender: FDA-Public Use
  Company Number: US-ASTRAZENECA-2011SE07082

PATIENT
  Age: 85 Year
  Sex: Female

DRUGS (6)
  1. VITAMIN D [Concomitant]
  2. COQ10 [Concomitant]
  3. OMEGA FATTY ACIDS [Concomitant]
  4. CRESTOR [Suspect]
     Route: 048
     Dates: start: 20110101, end: 20110207
  5. LOSARTAN POTASSIUM [Concomitant]
  6. ASPIRIN [Concomitant]

REACTIONS (1)
  - BACK PAIN [None]
